FAERS Safety Report 9299027 (Version 4)
Quarter: 2014Q2

REPORT INFORMATION
  Report Type: Spontaneous
  Country: US (occurrence: US)
  Receive Date: 20130520
  Receipt Date: 20140613
  Transmission Date: 20141212
  Serious: No
  Sender: FDA-Public Use
  Company Number: US-009507513-1305USA011310

PATIENT
  Sex: Male

DRUGS (2)
  1. PROVENTIL [Suspect]
     Dosage: 2 SPRAYS EVERY 4 TO 6 HOURS, AS NEEDED
     Route: 055
     Dates: start: 20130501
  2. PROVENTIL [Suspect]
     Dosage: FOR YEARS, 2 PUFFS EVERY 4-8 HOURS AS NEEDED
     Route: 055

REACTIONS (6)
  - Therapy cessation [Unknown]
  - Discomfort [Unknown]
  - Drug dose omission [Unknown]
  - Product quality issue [Unknown]
  - Product quality issue [Unknown]
  - Incorrect dose administered [Unknown]
